FAERS Safety Report 4677775-X (Version None)
Quarter: 2005Q2

REPORT INFORMATION
  Report Type: 
  Country: None (occurrence: None)
  Receive Date: 20050531
  Receipt Date: 20050518
  Transmission Date: 20051028
  Serious: Yes (Other)
  Sender: FDA-Public Use
  Company Number: ES-JNJFOC-20050407142

PATIENT
  Age: 53 Year
  Sex: Male
  Weight: 55 kg

DRUGS (7)
  1. REMICADE [Suspect]
     Route: 042
  2. REMICADE [Suspect]
     Route: 042
  3. REMICADE [Suspect]
     Indication: ANAL FISTULA
     Dosage: 2 INFUSIONS
     Route: 042
  4. REMICADE [Suspect]
     Indication: CROHN'S DISEASE
     Dosage: (3 INFUSIONS) WEEKS 0,2 AND 6
     Route: 042
  5. IRON [Concomitant]
     Route: 042
  6. DACORTIN [Concomitant]
     Route: 049
  7. IMUREL [Concomitant]
     Route: 049

REACTIONS (3)
  - ANAL NEOPLASM [None]
  - COLONIC STENOSIS [None]
  - INTESTINAL OBSTRUCTION [None]
